FAERS Safety Report 12260877 (Version 1)
Quarter: 2016Q2

REPORT INFORMATION
  Report Type: Spontaneous
  Country: US (occurrence: None)
  Receive Date: 20160412
  Receipt Date: 20160412
  Transmission Date: 20160815
  Serious: Yes (Death, Hospitalization)
  Sender: FDA-Public Use
  Company Number: None

PATIENT
  Age: 9 Year
  Sex: Male
  Weight: 47.8 kg

DRUGS (7)
  1. CYTARABINE. [Suspect]
     Active Substance: CYTARABINE
     Dates: end: 20150509
  2. DEXAMETHASONE. [Suspect]
     Active Substance: DEXAMETHASONE
     Dates: end: 20150325
  3. METHOTREXATE [Suspect]
     Active Substance: METHOTREXATE
     Dates: end: 20150430
  4. CYCLOPHOSPHAMIDE. [Suspect]
     Active Substance: CYCLOPHOSPHAMIDE
     Dates: end: 20150506
  5. DAUNORUBICIN [Suspect]
     Active Substance: DAUNORUBICIN
     Dates: end: 20150325
  6. ONCASPAR [Suspect]
     Active Substance: PEGASPARGASE
     Dates: end: 20150423
  7. MERCAPTOPURINE. [Suspect]
     Active Substance: MERCAPTOPURINE
     Dates: end: 20150509

REACTIONS (11)
  - Renal impairment [None]
  - Pleural effusion [None]
  - Colitis [None]
  - Ascites [None]
  - Dialysis [None]
  - Hypoglycaemia [None]
  - Cardio-respiratory arrest [None]
  - Urine output decreased [None]
  - Hepatic steatosis [None]
  - Electrolyte imbalance [None]
  - Pancreatitis [None]

NARRATIVE: CASE EVENT DATE: 20150510
